FAERS Safety Report 7995055 (Version 7)
Quarter: 2014Q1

REPORT INFORMATION
  Report Type: Spontaneous
  Country: US (occurrence: US)
  Receive Date: 20110616
  Receipt Date: 20140120
  Transmission Date: 20141002
  Serious: Yes (Hospitalization, Disabling, Other)
  Sender: FDA-Public Use
  Company Number: US-009507513-1106USA01821

PATIENT
  Sex: Female
  Weight: 57.15 kg

DRUGS (8)
  1. FOSAMAX [Suspect]
     Indication: OSTEOPOROSIS
     Dosage: 70 MG, UNK
     Route: 048
     Dates: start: 200110, end: 200804
  2. FOSAMAX [Suspect]
     Indication: OSTEOPENIA
  3. MK-9278 [Concomitant]
     Dosage: UNK UNK, QD
     Dates: start: 1999
  4. CALCIUM CITRATE [Concomitant]
     Dosage: 600 MG, BID
     Dates: start: 1999
  5. VITAMIN D (UNSPECIFIED) [Concomitant]
     Dosage: UNK UNK, QD
     Dates: start: 1999
  6. OMEGA-3 MARINE TRIGLYCERIDES [Concomitant]
     Dosage: UNK UNK, QD
     Dates: start: 1999
  7. ECOTRIN [Concomitant]
  8. OXYCODONE [Concomitant]

REACTIONS (33)
  - Intramedullary rod insertion [Recovered/Resolved]
  - Femur fracture [Unknown]
  - Femur fracture [Unknown]
  - Femur fracture [Recovered/Resolved]
  - Hyperlipidaemia [Unknown]
  - Anxiety [Unknown]
  - Sinusitis [Unknown]
  - Osteopetrosis [Unknown]
  - Tonsillar hypertrophy [Unknown]
  - Elbow deformity [Recovering/Resolving]
  - Acrochordon [Unknown]
  - Fibrocystic breast disease [Unknown]
  - Dermatitis [Unknown]
  - Onychomycosis [Unknown]
  - Osteoarthritis [Unknown]
  - Glucose tolerance impaired [Unknown]
  - Upper respiratory tract infection [Unknown]
  - Menopause [Unknown]
  - Swelling [Unknown]
  - Renal cyst [Unknown]
  - Taeniasis [Unknown]
  - Hyperkalaemia [Unknown]
  - Conjunctivitis [Unknown]
  - Haemorrhoids [Unknown]
  - Investigation abnormal [Unknown]
  - Goitre [Unknown]
  - Thyroid neoplasm [Unknown]
  - Skin papilloma [Unknown]
  - Osteoporosis [Unknown]
  - Rash [Unknown]
  - Constipation [Unknown]
  - Drug ineffective [Unknown]
  - Musculoskeletal pain [Unknown]
